FAERS Safety Report 8042990-4 (Version None)
Quarter: 2012Q1

REPORT INFORMATION
  Report Type: 
  Country: None (occurrence: None)
  Receive Date: 20120112
  Receipt Date: 20120109
  Transmission Date: 20120608
  Serious: Yes (Death)
  Sender: FDA-Public Use
  Company Number: PHHY2012CA002167

PATIENT
  Sex: Male

DRUGS (3)
  1. AFINITOR [Suspect]
     Indication: CARCINOID TUMOUR
     Dosage: 10 MG, UNK
     Route: 048
     Dates: start: 20111003
  2. ZOMETA [Suspect]
     Indication: CARCINOID TUMOUR
     Dosage: 4 MG EVERY 4 WEEKS
     Route: 042
     Dates: start: 20111110
  3. SANDOSTATIN [Suspect]
     Indication: CARCINOID TUMOUR
     Dosage: UNK UKN, UNK
     Route: 058

REACTIONS (1)
  - DEATH [None]
